FAERS Safety Report 18753059 (Version 1)
Quarter: 2021Q1

REPORT INFORMATION
  Report Type: Spontaneous
  Country: US (occurrence: US)
  Receive Date: 20210118
  Receipt Date: 20210118
  Transmission Date: 20210419
  Serious: Yes (Other)
  Sender: FDA-Public Use
  Company Number: US-ALEMBIC PHARMACUETICALS LIMITED-2021SCAL000008

PATIENT

DRUGS (2)
  1. DOXYCYCLINE. [Suspect]
     Active Substance: DOXYCYCLINE
     Indication: ACUTE SINUSITIS
     Dosage: UNK
  2. OSELTAMIVIR [Concomitant]
     Active Substance: OSELTAMIVIR
     Indication: INFLUENZA
     Dosage: UNK

REACTIONS (11)
  - Glomerulonephritis minimal lesion [Recovering/Resolving]
  - Oedema peripheral [Recovered/Resolved]
  - Dizziness [Recovering/Resolving]
  - Eyelid oedema [Recovering/Resolving]
  - Red blood cells urine [Unknown]
  - Circumoral oedema [Recovering/Resolving]
  - Albumin urine present [Recovering/Resolving]
  - Creatinine urine increased [Recovered/Resolved]
  - Blood pressure systolic increased [Recovering/Resolving]
  - Blood pressure increased [Recovering/Resolving]
  - Proteinuria [Recovered/Resolved]
